FAERS Safety Report 10156788 (Version 1)
Quarter: 2014Q2

REPORT INFORMATION
  Report Type: Spontaneous
  Country: US (occurrence: None)
  Receive Date: 20140506
  Receipt Date: 20140506
  Transmission Date: 20141212
  Serious: No
  Sender: FDA-Public Use
  Company Number: None

PATIENT
  Age: 66 Year
  Sex: Male

DRUGS (9)
  1. TAFINLAR [Suspect]
     Indication: PRODUCT USED FOR UNKNOWN INDICATION
     Route: 048
     Dates: start: 20140312
  2. ESTROGEN [Concomitant]
  3. XANAX [Concomitant]
  4. ZOLOFT [Concomitant]
  5. TYLENOL [Concomitant]
  6. VITAMIN C [Concomitant]
  7. VITAMIN E [Concomitant]
  8. VIACTIVE [Concomitant]
  9. NASONEX [Concomitant]

REACTIONS (2)
  - Pyrexia [None]
  - Nausea [None]
